FAERS Safety Report 10252809 (Version 1)
Quarter: 2014Q2

REPORT INFORMATION
  Report Type: Spontaneous
  Country: US (occurrence: US)
  Receive Date: 20140623
  Receipt Date: 20140623
  Transmission Date: 20141212
  Serious: No
  Sender: FDA-Public Use
  Company Number: US-PFIZER INC-2014170609

PATIENT
  Age: 53 Year
  Sex: Female
  Weight: 77.1 kg

DRUGS (3)
  1. XELJANZ [Suspect]
     Indication: RHEUMATOID ARTHRITIS
     Dosage: 5 MG, 2X/DAY
  2. DIOVAN [Concomitant]
     Dosage: 80 MG, DAILY
  3. OMEPRAZOLE [Concomitant]
     Dosage: UNK, DAILY

REACTIONS (2)
  - Blood cholesterol increased [Unknown]
  - Peripheral swelling [Unknown]
